FAERS Safety Report 6773139-3 (Version None)
Quarter: 2010Q2

REPORT INFORMATION
  Report Type: 
  Country: None (occurrence: None)
  Receive Date: 20100616
  Receipt Date: 20091109
  Transmission Date: 20101027
  Serious: No
  Sender: FDA-Public Use
  Company Number: US-TYCO HEALTHCARE/MALLINCKRODT-T200902109

PATIENT
  Sex: Female
  Weight: 128.35 kg

DRUGS (9)
  1. ULTRATAG [Suspect]
     Indication: RADIOISOTOPE SCAN
     Dosage: UNK
     Dates: start: 20091108, end: 20091108
  2. HEPARIN [Suspect]
     Indication: ANTICOAGULANT THERAPY
     Dosage: UNK
     Dates: start: 20091108, end: 20091108
  3. ULTRA-TECHNEKOW [Concomitant]
     Indication: RADIOISOTOPE SCAN
     Dosage: UNK
     Dates: start: 20091107, end: 20091107
  4. ULTRA-TECHNEKOW [Concomitant]
     Dosage: UNK
     Dates: start: 20091108, end: 20091108
  5. ULTRA-TECHNEKOW [Concomitant]
     Dosage: UNK
     Dates: start: 20091101, end: 20091101
  6. HEPARIN [Concomitant]
     Dosage: UNK
     Dates: start: 20091107, end: 20091107
  7. HEPARIN [Concomitant]
     Dosage: UNK
     Dates: start: 20091108, end: 20091108
  8. ULTRATAG [Concomitant]
     Dosage: UNK
     Dates: start: 20091107, end: 20091107
  9. ULTRATAG [Concomitant]
     Dosage: UNK
     Dates: start: 20091101, end: 20091101

REACTIONS (1)
  - DRUG INEFFECTIVE [None]
